FAERS Safety Report 10374810 (Version 1)
Quarter: 2014Q3

REPORT INFORMATION
  Report Type: Report from Study
  Country: US (occurrence: US)
  Receive Date: 20140811
  Receipt Date: 20140811
  Transmission Date: 20150326
  Serious: No
  Sender: FDA-Public Use
  Company Number: US-009507513-1408USA003930

PATIENT
  Age: 38 Year
  Sex: Female
  Weight: 117.91 kg

DRUGS (1)
  1. IMPLANON [Suspect]
     Active Substance: ETONOGESTREL
     Dosage: UNK
     Route: 059
     Dates: start: 20130212, end: 20140805

REACTIONS (3)
  - Weight increased [Unknown]
  - Menstruation irregular [Unknown]
  - Device difficult to use [Unknown]
